FAERS Safety Report 25622955 (Version 1)
Quarter: 2025Q3

REPORT INFORMATION
  Report Type: Spontaneous
  Country: US (occurrence: US)
  Receive Date: 20250730
  Receipt Date: 20250730
  Transmission Date: 20251021
  Serious: No
  Sender: GALPHARM INTERNATIONAL
  Company Number: US-PERRIGO-24US010634

PATIENT

DRUGS (5)
  1. LORATADINE [Suspect]
     Active Substance: LORATADINE
     Indication: Hypersensitivity
     Route: 048
     Dates: start: 20241105, end: 20241107
  2. LORATADINE [Suspect]
     Active Substance: LORATADINE
     Indication: Eye pruritus
  3. LORATADINE [Suspect]
     Active Substance: LORATADINE
     Indication: Lacrimation increased
  4. LORATADINE [Suspect]
     Active Substance: LORATADINE
     Indication: Rhinorrhoea
  5. LORATADINE [Suspect]
     Active Substance: LORATADINE
     Indication: Oropharyngeal pain

REACTIONS (3)
  - Nasal congestion [Unknown]
  - Condition aggravated [Unknown]
  - Drug effect less than expected [Unknown]

NARRATIVE: CASE EVENT DATE: 20241105
